FAERS Safety Report 7399180-8 (Version None)
Quarter: 2011Q1

REPORT INFORMATION
  Report Type: 
  Country: None (occurrence: None)
  Receive Date: 20110328
  Receipt Date: 20110318
  Transmission Date: 20110831
  Serious: Yes (Hospitalization)
  Sender: FDA-Public Use
  Company Number: DSM-2011-00324

PATIENT
  Age: 63 Year
  Sex: Female

DRUGS (4)
  1. IMURAN [Concomitant]
  2. NEXIAM (ESOMEPRAZOLE) (ESOMEPRAZOLE) [Concomitant]
  3. BELSAR (OLMESARTAN MEDOXOMIL) (TABLET) (OLMESARTAN MEDOXOMIL) [Suspect]
     Indication: HYPERTENSION
     Dosage: 20 MG (20 MG,SINGLE DOSE) , ORAL
     Route: 048
     Dates: start: 20110224, end: 20110224
  4. BISOPROLOL FUMARATE [Suspect]
     Indication: HYPERTENSION
     Dosage: 10 MG, ORAL
     Route: 048

REACTIONS (2)
  - TONGUE BITING [None]
  - EPILEPSY [None]
